FAERS Safety Report 18910897 (Version 1)
Quarter: 2021Q1

REPORT INFORMATION
  Report Type: Spontaneous
  Country: FR (occurrence: FR)
  Receive Date: 20210218
  Receipt Date: 20210218
  Transmission Date: 20210420
  Serious: Yes (Life-Threatening, Hospitalization)
  Sender: FDA-Public Use
  Company Number: FR-PFIZER INC-2021134192

PATIENT
  Age: 79 Year
  Sex: Female

DRUGS (8)
  1. IRBESARTAN. [Suspect]
     Active Substance: IRBESARTAN
     Dosage: 300 MG, SINGLE
     Route: 048
     Dates: start: 20210109, end: 20210109
  2. PROPRANOLOL [Suspect]
     Active Substance: PROPRANOLOL HYDROCHLORIDE
     Dosage: 40 MG, 1X/DAY
     Route: 048
     Dates: start: 20210109, end: 20210109
  3. GABAPENTIN. [Suspect]
     Active Substance: GABAPENTIN
     Dosage: 300 MG, SINGLE
     Route: 048
     Dates: start: 20210109, end: 20210109
  4. SERESTA [Suspect]
     Active Substance: OXAZEPAM
     Dosage: 1 DF, SINGLE
     Route: 048
     Dates: start: 20210109, end: 20210109
  5. LERCAN [Suspect]
     Active Substance: LERCANIDIPINE
     Dosage: 1 DF, SINGLE
     Route: 048
     Dates: start: 20210109, end: 20210109
  6. MODOPAR [Suspect]
     Active Substance: BENSERAZIDE HYDROCHLORIDE\LEVODOPA
     Dosage: 1 DF, SINGLE
     Route: 048
     Dates: start: 20210109, end: 20210109
  7. DAFALGAN [Concomitant]
     Active Substance: ACETAMINOPHEN
     Dosage: 1 DF, SINGLE
     Route: 048
     Dates: start: 20210109, end: 20210109
  8. MACROGOL [Concomitant]
     Active Substance: POLYETHYLENE GLYCOLS
     Dosage: 10 G, SINGLE
     Route: 048
     Dates: start: 20210109, end: 20210109

REACTIONS (4)
  - Wrong product administered [Recovered/Resolved]
  - Hypotension [Recovered/Resolved]
  - Cardio-respiratory arrest [Recovered/Resolved]
  - Coma [Recovered/Resolved]

NARRATIVE: CASE EVENT DATE: 20210109
